FAERS Safety Report 18280664 (Version 1)
Quarter: 2020Q3

REPORT INFORMATION
  Report Type: Spontaneous
  Country: US (occurrence: US)
  Receive Date: 20200918
  Receipt Date: 20200918
  Transmission Date: 20201103
  Serious: Yes (Hospitalization)
  Sender: FDA-Public Use
  Company Number: US-PFIZER INC-2020360072

PATIENT
  Age: 81 Year
  Sex: Male

DRUGS (1)
  1. DILANTIN [Suspect]
     Active Substance: PHENYTOIN
     Dosage: 100 MG

REACTIONS (2)
  - Hip fracture [Unknown]
  - Fall [Unknown]
